FAERS Safety Report 6640976-5 (Version None)
Quarter: 2010Q1

REPORT INFORMATION
  Report Type: 
  Country: None (occurrence: None)
  Receive Date: 20100318
  Receipt Date: 20100310
  Transmission Date: 20100710
  Serious: Yes (Other)
  Sender: FDA-Public Use
  Company Number: A0846300A

PATIENT
  Age: 67 Year
  Sex: Male

DRUGS (1)
  1. ALTARGO [Suspect]
     Indication: ULCER
     Route: 061

REACTIONS (7)
  - BLISTER [None]
  - CONDITION AGGRAVATED [None]
  - DERMATITIS BULLOUS [None]
  - ERYTHEMA [None]
  - FEELING HOT [None]
  - IMMUNE SYSTEM DISORDER [None]
  - SKIN ULCER [None]
